FAERS Safety Report 4381470-4 (Version None)
Quarter: 2004Q2

REPORT INFORMATION
  Report Type: 
  Country: None (occurrence: None)
  Receive Date: 20040615
  Receipt Date: 20040603
  Transmission Date: 20050107
  Serious: Yes (Hospitalization)
  Sender: FDA-Public Use
  Company Number: 2004-01852

PATIENT
  Age: 78 Year
  Sex: Female

DRUGS (16)
  1. OXYTROL [Suspect]
     Indication: BLADDER SPASM
     Dosage: 1 PATCH, 2/WEEK, TRANSDERMAL; 1 PATCH, 2/WEEK, TRANSDERMAL
     Route: 062
     Dates: start: 20040324, end: 20040326
  2. OXYTROL [Suspect]
     Indication: INCONTINENCE
     Dosage: 1 PATCH, 2/WEEK, TRANSDERMAL; 1 PATCH, 2/WEEK, TRANSDERMAL
     Route: 062
     Dates: start: 20040324, end: 20040326
  3. OXYTROL [Suspect]
     Indication: BLADDER SPASM
     Dosage: 1 PATCH, 2/WEEK, TRANSDERMAL; 1 PATCH, 2/WEEK, TRANSDERMAL
     Route: 062
     Dates: start: 20040331, end: 20040417
  4. OXYTROL [Suspect]
     Indication: INCONTINENCE
     Dosage: 1 PATCH, 2/WEEK, TRANSDERMAL; 1 PATCH, 2/WEEK, TRANSDERMAL
     Route: 062
     Dates: start: 20040331, end: 20040417
  5. PLAVIX [Concomitant]
  6. CARDURA [Concomitant]
  7. DOCUSATE (DOCUSATE) [Concomitant]
  8. PREMARIN [Concomitant]
  9. MAXZIDE [Concomitant]
  10. CELEBREX [Concomitant]
  11. DIDRONEL [Concomitant]
  12. CELEXA [Concomitant]
  13. ULTRAM [Concomitant]
  14. PREVACID [Concomitant]
  15. DITROPAN [Concomitant]
  16. FLOVENT [Concomitant]

REACTIONS (8)
  - APPLICATION SITE ERYTHEMA [None]
  - APPLICATION SITE PRURITUS [None]
  - APPLICATION SITE SWELLING [None]
  - APPLICATION SITE WARMTH [None]
  - DYSKINESIA [None]
  - MYOCLONUS [None]
  - NAUSEA [None]
  - SENSORY LOSS [None]
